FAERS Safety Report 4710057-6 (Version None)
Quarter: 2005Q3

REPORT INFORMATION
  Report Type: 
  Country: None (occurrence: None)
  Receive Date: 20050706
  Receipt Date: 20050624
  Transmission Date: 20060218
  Serious: Yes (Other)
  Sender: FDA-Public Use
  Company Number: 2005092871

PATIENT
  Age: 80 Year
  Sex: Female

DRUGS (1)
  1. SULPERAZON (SULBACTAM, CEFOPERAZONE) [Suspect]
     Indication: POSTOPERATIVE CARE
     Dosage: 2 GRAM (1 GRAM, BID), INTRAVENOUS
     Route: 042

REACTIONS (1)
  - JAUNDICE [None]
